FAERS Safety Report 4345358-7 (Version None)
Quarter: 2004Q2

REPORT INFORMATION
  Report Type: 
  Country: None (occurrence: None)
  Receive Date: 20040422
  Receipt Date: 20040422
  Transmission Date: 20050107
  Serious: Yes (Life-Threatening, Hospitalization)
  Sender: FDA-Public Use
  Company Number: None

PATIENT
  Age: 59 Year
  Sex: Male
  Weight: 142.8831 kg

DRUGS (3)
  1. MARCAINE [Suspect]
     Dosage: INTRA-ARTICULAR
     Route: 014
  2. TORADOL [Suspect]
     Indication: NECROTISING FASCIITIS
     Dosage: ONE INTRAMSUCULAR
     Route: 030
     Dates: start: 20040416, end: 20040416
  3. DEPO-MEDROL [Suspect]

REACTIONS (2)
  - INJECTION SITE NECROSIS [None]
  - NECROTISING FASCIITIS [None]
